FAERS Safety Report 15139399 (Version 2)
Quarter: 2018Q3

REPORT INFORMATION
  Report Type: Spontaneous
  Country: US (occurrence: US)
  Receive Date: 20180713
  Receipt Date: 20180725
  Transmission Date: 20181010
  Serious: Yes (Hospitalization, Other)
  Sender: FDA-Public Use
  Company Number: US-ACCORD-069576

PATIENT
  Sex: Female
  Weight: .87 kg

DRUGS (7)
  1. PARACETAMOL [Suspect]
     Active Substance: ACETAMINOPHEN
     Route: 064
  2. QUETIAPINE. [Suspect]
     Active Substance: QUETIAPINE
     Route: 064
  3. PROPOFOL. [Suspect]
     Active Substance: PROPOFOL
     Dosage: PRIOR TO DELIVERY
     Route: 064
  4. BETAMETHASONE. [Suspect]
     Active Substance: BETAMETHASONE
     Dosage: 1 DAY PRIOR TO DELIVERY, SECOND DOSE GIVEN 3 HOURS BEFORE DELIVERY
     Route: 064
  5. ACETYLCYSTEINE. [Suspect]
     Active Substance: ACETYLCYSTEINE
     Dosage: PRIOR TO DELIVERY
     Route: 064
  6. SODIUM BICARBONATE. [Suspect]
     Active Substance: SODIUM BICARBONATE
     Dosage: PRIOR TO DELIVERY
     Route: 064
  7. ACETYLSALICYLIC ACID [Suspect]
     Active Substance: ASPIRIN
     Route: 064

REACTIONS (5)
  - Foetal exposure during pregnancy [Unknown]
  - Drug level increased [Recovered/Resolved]
  - Coagulopathy [Recovered/Resolved]
  - Bradycardia foetal [Recovered/Resolved]
  - Premature baby [Unknown]
